FAERS Safety Report 26121493 (Version 1)
Quarter: 2025Q4

REPORT INFORMATION
  Report Type: Spontaneous
  Country: US (occurrence: US)
  Receive Date: 20251204
  Receipt Date: 20251204
  Transmission Date: 20260119
  Serious: Yes (Hospitalization)
  Sender: MYLAN
  Company Number: US-MYLANLABS-2025M1103064

PATIENT
  Age: 89 Year
  Sex: Female

DRUGS (1)
  1. IRON SUCROSE [Suspect]
     Active Substance: IRON SUCROSE
     Indication: Iron deficiency anaemia
     Dosage: UNK

REACTIONS (4)
  - Fusobacterium infection [Unknown]
  - Liver abscess [Unknown]
  - Mental status changes [Unknown]
  - Hypotension [Unknown]
